FAERS Safety Report 4398944-2 (Version None)
Quarter: 2004Q2

REPORT INFORMATION
  Report Type: 
  Country: None (occurrence: None)
  Receive Date: 20040621
  Receipt Date: 20031212
  Transmission Date: 20050107
  Serious: Yes (Death)
  Sender: FDA-Public Use
  Company Number: KII-2002-0000260

PATIENT
  Age: 40 Year
  Sex: Female

DRUGS (2)
  1. OXYCONTIN [Suspect]
     Indication: PAIN
     Dosage: 40 MG, Q12H, ORAL
     Route: 048
  2. SOMA [Concomitant]

REACTIONS (2)
  - DRUG ABUSER [None]
  - OVERDOSE [None]
